FAERS Safety Report 6749373-5 (Version None)
Quarter: 2010Q2

REPORT INFORMATION
  Report Type: 
  Country: None (occurrence: None)
  Receive Date: 20100601
  Receipt Date: 20100525
  Transmission Date: 20101027
  Serious: Yes (Other)
  Sender: FDA-Public Use
  Company Number: US-ROCHE-704033

PATIENT
  Sex: Female
  Weight: 87 kg

DRUGS (2)
  1. BEVACIZUMAB [Suspect]
     Indication: BREAST CANCER
     Dosage: INFUSION DURATION: 30 MINUTES
     Route: 042
     Dates: start: 20090827
  2. FEMARA [Concomitant]
     Route: 048

REACTIONS (1)
  - RADIATION SKIN INJURY [None]
